FAERS Safety Report 11765178 (Version 1)
Quarter: 2015Q4

REPORT INFORMATION
  Report Type: Spontaneous
  Country: US (occurrence: US)
  Receive Date: 20151120
  Receipt Date: 20151120
  Transmission Date: 20160304
  Serious: No
  Sender: FDA-Public Use
  Company Number: US-ELI_LILLY_AND_COMPANY-US201312005765

PATIENT
  Age: 64 Year
  Sex: Female

DRUGS (5)
  1. SYNTHROID [Concomitant]
     Active Substance: LEVOTHYROXINE SODIUM
  2. LOVASTATIN. [Concomitant]
     Active Substance: LOVASTATIN
  3. FORTEO [Suspect]
     Active Substance: TERIPARATIDE
     Indication: OSTEOPOROSIS
     Dosage: UNK UNK, QD
     Route: 065
     Dates: start: 201305
  4. FORTEO [Suspect]
     Active Substance: TERIPARATIDE
     Dosage: UNK
  5. PLAVIX [Concomitant]
     Active Substance: CLOPIDOGREL BISULFATE

REACTIONS (3)
  - Injection site bruising [Unknown]
  - Drug dose omission [Unknown]
  - Fear [Unknown]

NARRATIVE: CASE EVENT DATE: 20131214
